FAERS Safety Report 11966100 (Version 1)
Quarter: 2016Q1

REPORT INFORMATION
  Report Type: Spontaneous
  Country: US (occurrence: None)
  Receive Date: 20160125
  Receipt Date: 20160125
  Transmission Date: 20160526
  Serious: Yes (Life-Threatening, Disabling)
  Sender: FDA-Public Use
  Company Number: None

PATIENT
  Age: 46 Year
  Sex: Female

DRUGS (2)
  1. HUMIRA [Suspect]
     Active Substance: ADALIMUMAB
     Indication: SPONDYLITIS
     Dosage: 1 PREFILLED PEN, EVERY OTHER WEEK, GIVEN INTO/UNDER THE SKIN
     Dates: start: 20121121, end: 20131006
  2. HUMIRA [Suspect]
     Active Substance: ADALIMUMAB
     Indication: CROHN^S DISEASE
     Dosage: 1 PREFILLED PEN, EVERY OTHER WEEK, GIVEN INTO/UNDER THE SKIN
     Dates: start: 20121121, end: 20131006

REACTIONS (2)
  - Malignant melanoma [None]
  - Melanocytic naevus [None]

NARRATIVE: CASE EVENT DATE: 20131004
